FAERS Safety Report 10167119 (Version 3)
Quarter: 2014Q2

REPORT INFORMATION
  Report Type: Spontaneous
  Country: US (occurrence: US)
  Receive Date: 20140512
  Receipt Date: 20140616
  Transmission Date: 20141212
  Serious: Yes (Death, Hospitalization)
  Sender: FDA-Public Use
  Company Number: US-BAXTER-2014BAX022320

PATIENT
  Sex: Female

DRUGS (3)
  1. DIANEAL LOW CALCIUM [Suspect]
     Indication: PERITONEAL DIALYSIS
     Route: 033
     Dates: end: 20140528
  2. EXTRANEAL [Suspect]
     Indication: PERITONEAL DIALYSIS
     Route: 033
     Dates: end: 20140528
  3. Z-PAK [Suspect]
     Indication: BRONCHITIS
     Dates: start: 20140429

REACTIONS (6)
  - Respiratory failure [Fatal]
  - Fluid retention [Fatal]
  - Respiratory arrest [Fatal]
  - Bronchitis [Not Recovered/Not Resolved]
  - Adverse reaction [Not Recovered/Not Resolved]
  - Haemorrhage [Not Recovered/Not Resolved]
